FAERS Safety Report 4386954-0 (Version None)
Quarter: 2004Q2

REPORT INFORMATION
  Report Type: 
  Country: None (occurrence: None)
  Receive Date: 20040625
  Receipt Date: 20040621
  Transmission Date: 20050107
  Serious: Yes (Hospitalization)
  Sender: FDA-Public Use
  Company Number: J081-002-001484

PATIENT
  Age: 67 Year
  Sex: Male

DRUGS (8)
  1. ARICEPT [Suspect]
     Indication: DEMENTIA ALZHEIMER'S TYPE
     Dosage: SEE IMAGE
     Route: 048
     Dates: start: 20030808, end: 20030821
  2. ARICEPT [Suspect]
     Indication: DEMENTIA ALZHEIMER'S TYPE
     Dosage: SEE IMAGE
     Route: 048
     Dates: start: 20030822
  3. SERENACE (HALOPERIDOL) [Concomitant]
  4. LERITE (ENALAPRIL MALEATE) [Concomitant]
  5. GLUCOBAY [Concomitant]
  6. ZESTROMIN (BROTIZOLAM) [Concomitant]
  7. SEDIEL (TANDOSPIRONE CITRATE) [Concomitant]
  8. CRAMITON (GLIBENCLAMIDE) [Concomitant]

REACTIONS (4)
  - BLOOD POTASSIUM DECREASED [None]
  - NEUROLEPTIC MALIGNANT SYNDROME [None]
  - RHABDOMYOLYSIS [None]
  - WHITE BLOOD CELL COUNT INCREASED [None]
